FAERS Safety Report 5929521-7 (Version None)
Quarter: 2008Q4

REPORT INFORMATION
  Report Type: 
  Country: None (occurrence: None)
  Receive Date: 20081024
  Receipt Date: 20081021
  Transmission Date: 20090506
  Serious: Yes (Hospitalization)
  Sender: FDA-Public Use
  Company Number: B0511805A

PATIENT
  Age: 59 Year
  Sex: Female
  Weight: 50 kg

DRUGS (11)
  1. VALTREX [Suspect]
     Indication: HERPES ZOSTER
     Dosage: 1000MG THREE TIMES PER DAY
     Route: 048
     Dates: start: 20080304, end: 20080304
  2. OMEPRAL [Concomitant]
     Dosage: 20MG PER DAY
     Route: 048
  3. NU-LOTAN [Concomitant]
     Dosage: 40MG PER DAY
     Route: 048
  4. MAGMITT [Concomitant]
     Dosage: 990MG PER DAY
     Route: 048
  5. VITAMEDIN [Concomitant]
     Route: 048
  6. MUCOSTA [Concomitant]
     Dosage: 300MG PER DAY
     Route: 048
  7. ADALAT [Concomitant]
     Dosage: 40MG PER DAY
     Route: 048
  8. NITOROL R [Concomitant]
     Dosage: 60MG PER DAY
     Route: 048
  9. CALTAN [Concomitant]
     Dosage: 300MG PER DAY
     Route: 048
  10. UNSPECIFIED DRUG [Concomitant]
     Route: 048
  11. ASPIRIN [Concomitant]
     Dosage: 200MG PER DAY
     Route: 048

REACTIONS (3)
  - DIZZINESS [None]
  - DYSARTHRIA [None]
  - NEUROSIS [None]
